FAERS Safety Report 7300851-X (Version None)
Quarter: 2011Q1

REPORT INFORMATION
  Report Type: 
  Country: None (occurrence: None)
  Receive Date: 20110103
  Receipt Date: 20100524
  Transmission Date: 20110831
  Serious: Yes (Hospitalization)
  Sender: FDA-Public Use
  Company Number: US-004515

PATIENT
  Age: 61 Year
  Sex: Male

DRUGS (2)
  1. MULTIHANCE [Suspect]
     Indication: NUCLEAR MAGNETIC RESONANCE IMAGING
     Dosage: 20ML ONCE INTRAVENOUS
     Route: 042
     Dates: start: 20100520, end: 20100520
  2. MULTIHANCE [Suspect]
     Indication: BACK PAIN
     Dosage: 20ML ONCE INTRAVENOUS
     Route: 042
     Dates: start: 20100520, end: 20100520

REACTIONS (1)
  - ANAPHYLACTIC REACTION [None]
